FAERS Safety Report 11820432 (Version 1)
Quarter: 2015Q4

REPORT INFORMATION
  Report Type: Spontaneous
  Country: US (occurrence: None)
  Receive Date: 20151209
  Receipt Date: 20151209
  Transmission Date: 20160305
  Serious: Yes (Other)
  Sender: FDA-Public Use
  Company Number: None

PATIENT
  Age: 62 Year
  Sex: Female
  Weight: 75.3 kg

DRUGS (8)
  1. IBUPROFEN. [Concomitant]
     Active Substance: IBUPROFEN
  2. BUPROPION. [Suspect]
     Active Substance: BUPROPION
     Indication: DEPRESSION
     Dosage: TAKEN BY MOUTH
     Route: 048
  3. TRAMADOL. [Concomitant]
     Active Substance: TRAMADOL
  4. XANAX [Concomitant]
     Active Substance: ALPRAZOLAM
  5. MULTI VITAMIN [Concomitant]
     Active Substance: VITAMINS
  6. BUPROPION. [Concomitant]
     Active Substance: BUPROPION
  7. BIO-IDENTICAL HRT [Concomitant]
  8. PANTOPRAZOLE [Concomitant]
     Active Substance: PANTOPRAZOLE SODIUM

REACTIONS (1)
  - Alopecia [None]

NARRATIVE: CASE EVENT DATE: 20151207
